FAERS Safety Report 8962308 (Version 1)
Quarter: 2012Q4

REPORT INFORMATION
  Report Type: Spontaneous
  Country: US (occurrence: None)
  Receive Date: 20121203
  Receipt Date: 20121203
  Transmission Date: 20130627
  Serious: Yes (Other)
  Sender: FDA-Public Use
  Company Number: ACO_33110_2012

PATIENT
  Sex: Male

DRUGS (2)
  1. AMPYRA (DALFAMPRIDINE) TABLET, 10MG [Suspect]
     Indication: DRUG USE FOR UNKNOWN INDICATION
     Route: 048
  2. AMPYRA (DALFAMPRIDINE) TABLET, 10MG [Suspect]
     Indication: DRUG USE FOR UNKNOWN INDICATION

REACTIONS (5)
  - Convulsion [None]
  - Multiple sclerosis [None]
  - Therapeutic response unexpected [None]
  - Inappropriate schedule of drug administration [None]
  - Medication error [None]
